FAERS Safety Report 9912145 (Version 2)
Quarter: 2014Q1

REPORT INFORMATION
  Report Type: Spontaneous
  Country: US (occurrence: US)
  Receive Date: 20140220
  Receipt Date: 20140306
  Transmission Date: 20141002
  Serious: No
  Sender: FDA-Public Use
  Company Number: US-BRISTOL-MYERS SQUIBB COMPANY-20161006

PATIENT
  Age: 55 Year
  Sex: Male

DRUGS (1)
  1. ABILIFY TABS [Suspect]
     Indication: SCHIZOAFFECTIVE DISORDER BIPOLAR TYPE
     Route: 048
     Dates: start: 20140115

REACTIONS (1)
  - Blood sodium decreased [Not Recovered/Not Resolved]
